FAERS Safety Report 9172277 (Version 1)
Quarter: 2013Q1

REPORT INFORMATION
  Report Type: Report from Study
  Country: US (occurrence: US)
  Receive Date: 20130319
  Receipt Date: 20130319
  Transmission Date: 20140127
  Serious: Yes (Hospitalization)
  Sender: FDA-Public Use
  Company Number: US-TEVA-391243USA

PATIENT
  Age: 69 Year
  Sex: Female
  Weight: 49 kg

DRUGS (17)
  1. CUSTIRSEN SODIUM [Suspect]
     Indication: LUNG NEOPLASM MALIGNANT
  2. DOCETAXEL [Suspect]
     Indication: NON-SMALL CELL LUNG CANCER
     Dosage: 5.0476 MILLIGRAM DAILY;
     Route: 042
     Dates: start: 20130110
  3. AZITHROMYCIN [Suspect]
     Indication: PNEUMONIA
     Dosage: 250-500MG
     Route: 048
     Dates: start: 20130304
  4. DEXAMETHASONE [Concomitant]
     Indication: PROPHYLAXIS
     Dosage: 4 MILLIGRAM DAILY;
     Route: 048
     Dates: start: 20130212
  5. ACTONEL [Concomitant]
     Indication: OSTEOPOROSIS
     Dosage: 5 MICROGRAM DAILY;
     Route: 048
     Dates: start: 2008
  6. ADCIRCA [Concomitant]
     Indication: PULMONARY ARTERIAL HYPERTENSION
     Dosage: 40 MILLIGRAM DAILY;
     Route: 048
     Dates: start: 2008
  7. CALCIUM D [Concomitant]
     Indication: OSTEOPOROSIS
     Dosage: 600/100
     Route: 048
     Dates: start: 2008
  8. NORVASC [Concomitant]
     Indication: HYPERTENSION
     Dosage: 5 MILLIGRAM DAILY;
     Route: 048
     Dates: start: 2006
  9. PLAQUENIL [Concomitant]
     Indication: SCLERODERMA
     Dosage: 200 MILLIGRAM DAILY;
     Route: 048
     Dates: start: 2001
  10. PREVACID [Concomitant]
     Indication: PROPHYLAXIS
     Dosage: 15 MILLIGRAM DAILY;
     Route: 048
     Dates: start: 2001
  11. TESSALON PERLE [Concomitant]
     Indication: COUGH
     Dosage: 300 MILLIGRAM DAILY;
     Route: 048
     Dates: start: 20120706
  12. TOPROL XL [Concomitant]
     Indication: HYPERTENSION
     Dosage: 50 MILLIGRAM DAILY;
     Route: 048
     Dates: start: 2006
  13. ZOCOR [Concomitant]
     Indication: HYPERCHOLESTEROLAEMIA
     Dosage: 20 MILLIGRAM DAILY;
     Route: 048
     Dates: start: 2006
  14. CLARITIN [Concomitant]
     Indication: PROPHYLAXIS
     Route: 048
     Dates: start: 20130111
  15. MAGIC MOUTHWASH [Concomitant]
     Indication: MUCOSAL INFLAMMATION
     Route: 048
     Dates: start: 20130117
  16. NEULASTA [Concomitant]
     Indication: PROPHYLAXIS
  17. ASPIRIN [Concomitant]
     Indication: PROPHYLAXIS
     Dosage: 81 MILLIGRAM DAILY;
     Route: 048
     Dates: start: 20130221

REACTIONS (5)
  - Supraventricular tachycardia [Recovered/Resolved]
  - Palpitations [None]
  - Dyspnoea exertional [None]
  - Body temperature increased [None]
  - Pneumonia [None]
